FAERS Safety Report 8892609 (Version 1)
Quarter: 2012Q4

REPORT INFORMATION
  Report Type: 
  Country: US (occurrence: US)
  Receive Date: 20121107
  Receipt Date: 20121107
  Transmission Date: 20130627
  Serious: No
  Sender: FDA-Public Use
  Company Number: US-AMGEN-USASP2011054794

PATIENT

DRUGS (14)
  1. ENBREL [Suspect]
     Indication: PRODUCT USED FOR UNKNOWN INDICATION
     Dosage: 25 mg, 2 times/wk
     Route: 058
  2. CREON [Concomitant]
     Dosage: 5 UNK, UNK
  3. TOPAMAX [Concomitant]
     Dosage: 25 mg, UNK
  4. OMNICEF                            /00497602/ [Concomitant]
     Dosage: 300 mg, UNK
  5. SYNTHROID [Concomitant]
     Dosage: 75 mug, UNK
  6. ADRENAL [Concomitant]
     Dosage: 80 mg, UNK
  7. VITAMIN B 12 LICHTENSTEIN [Concomitant]
     Dosage: 1000 mug, UNK
  8. DETOX                              /00760201/ [Concomitant]
     Dosage: UNK unit, UNK
  9. CYTOMEL [Concomitant]
     Dosage: 5 mug, UNK
  10. WELCHOL [Concomitant]
     Dosage: 625 mg, UNK
  11. RESVERATROL [Concomitant]
     Dosage: 50 mg, UNK
  12. ALINIA [Concomitant]
     Dosage: 500 mg, UNK
  13. DIM                                /03044901/ [Concomitant]
     Dosage: UNK unit, UNK
  14. PLAQUENIL                          /00072602/ [Concomitant]
     Dosage: 200 mg, UNK

REACTIONS (1)
  - Pyrexia [Unknown]
